FAERS Safety Report 7465859-2 (Version None)
Quarter: 2011Q2

REPORT INFORMATION
  Report Type: 
  Country: None (occurrence: None)
  Receive Date: 20110509
  Receipt Date: 20100421
  Transmission Date: 20111010
  Serious: No
  Sender: FDA-Public Use
  Company Number: US-ALEXION-A201000378

PATIENT
  Sex: Male
  Weight: 102.74 kg

DRUGS (5)
  1. PROGRAF [Concomitant]
     Indication: PROPHYLAXIS AGAINST TRANSPLANT REJECTION
     Dosage: 5 MG, BID
     Route: 048
  2. MENINGOCOCCAL VACCINE [Concomitant]
     Dosage: UNK
     Dates: start: 20100101, end: 20100101
  3. SOLIRIS [Suspect]
     Dosage: 900 MG, Q2W
     Route: 042
  4. FOLIC ACID [Concomitant]
     Dosage: 1 MG, QD
  5. SOLIRIS [Suspect]
     Indication: PAROXYSMAL NOCTURNAL HAEMOGLOBINURIA
     Dosage: UNK
     Route: 042
     Dates: start: 20061101

REACTIONS (1)
  - UPPER RESPIRATORY TRACT INFECTION [None]
